FAERS Safety Report 6942329-9 (Version None)
Quarter: 2010Q3

REPORT INFORMATION
  Report Type: 
  Country: None (occurrence: None)
  Receive Date: 20100826
  Receipt Date: 20100820
  Transmission Date: 20110219
  Serious: Yes (Life-Threatening, Hospitalization)
  Sender: FDA-Public Use
  Company Number: HU-BRISTOL-MYERS SQUIBB COMPANY-15250905

PATIENT
  Age: 66 Year
  Sex: Male
  Weight: 65 kg

DRUGS (18)
  1. CISPLATIN [Suspect]
     Indication: NON-SMALL CELL LUNG CANCER
     Dosage: INTERR ON 09JUL10(22D).RESTRTD ON 22JUL10 TO ONG(DOSE REDUCED TO 56MG/M2). WITHDRAWN 03AUG10
     Route: 042
     Dates: start: 20100618
  2. NECITUMUMAB [Suspect]
     Indication: NON-SMALL CELL LUNG CANCER
     Dosage: LIQUID;INTERRUPTED ON 09JUL2010(22D) RESTARTED ON 22JUL2010; 2ND INF:25JUN2010
     Route: 042
     Dates: start: 20100618
  3. ALIMTA [Suspect]
     Indication: NON-SMALL CELL LUNG CANCER
     Dosage: INTRPTD ON 09JUL10(22D) RESTRTD ON 22JUL10 TO ONG(DOSE 375MG/M2)WITHDRAWN 03AUG10
     Route: 042
     Dates: start: 20100618
  4. SERETIDE [Concomitant]
  5. SPIRIVA [Concomitant]
  6. VENTOLIN [Concomitant]
  7. THEOSPIREX [Concomitant]
  8. AMBROXOL [Concomitant]
  9. ANDAXIN [Concomitant]
  10. TIAPRIDAL [Concomitant]
  11. FOLIC ACID [Concomitant]
     Dates: start: 20100610
  12. VITAMIN B-12 [Concomitant]
     Dates: start: 20100610
  13. MEGACE [Concomitant]
     Dates: start: 20100625, end: 20100630
  14. DALACIN [Concomitant]
     Dates: start: 20100625
  15. ELOCON [Concomitant]
     Dates: start: 20100625
  16. QUAMATEL [Concomitant]
     Dates: start: 20100630
  17. METHYLPREDNISOLONE [Concomitant]
  18. ONDANSETRON [Concomitant]

REACTIONS (3)
  - HAEMATOTOXICITY [None]
  - ILEUS PARALYTIC [None]
  - RENAL FAILURE [None]
